FAERS Safety Report 8032807-6 (Version None)
Quarter: 2012Q1

REPORT INFORMATION
  Report Type: 
  Country: None (occurrence: None)
  Receive Date: 20120110
  Receipt Date: 20120103
  Transmission Date: 20120608
  Serious: Yes (Hospitalization)
  Sender: FDA-Public Use
  Company Number: CA-SANOFI-AVENTIS-2011SA075140

PATIENT
  Age: 63 Year
  Sex: Male

DRUGS (8)
  1. METOLAZONE [Suspect]
     Dates: end: 20111020
  2. BLINDED THERAPY [Concomitant]
     Indication: TYPE 2 DIABETES MELLITUS
     Dates: start: 20101103
  3. METFORMIN HCL [Concomitant]
     Dates: start: 20110201
  4. LASIX [Suspect]
     Dates: end: 20111020
  5. METFORMIN HCL [Concomitant]
     Indication: TYPE 2 DIABETES MELLITUS
     Dates: end: 20110201
  6. NOVORAPID [Concomitant]
     Indication: TYPE 2 DIABETES MELLITUS
  7. NPH INSULIN [Concomitant]
     Indication: TYPE 2 DIABETES MELLITUS
  8. PLACEBO [Concomitant]
     Indication: TYPE 2 DIABETES MELLITUS
     Dates: start: 20101103

REACTIONS (6)
  - ACUTE PRERENAL FAILURE [None]
  - CARDIAC FAILURE CONGESTIVE [None]
  - BACK PAIN [None]
  - RENAL FAILURE ACUTE [None]
  - PNEUMONIA [None]
  - DYSPNOEA [None]
